FAERS Safety Report 6244907-1 (Version None)
Quarter: 2009Q2

REPORT INFORMATION
  Report Type: 
  Country: None (occurrence: None)
  Receive Date: 20090625
  Receipt Date: 20090616
  Transmission Date: 20091009
  Serious: Yes (Hospitalization)
  Sender: FDA-Public Use
  Company Number: PHHO2007US11413

PATIENT
  Sex: Male
  Weight: 80 kg

DRUGS (4)
  1. RAD 666 RAD+TAB+PTR [Suspect]
     Indication: HEART TRANSPLANT
     Dosage: 1.5 MG, BID
     Route: 048
     Dates: start: 20070401, end: 20070620
  2. RAD 666 RAD+TAB+PTR [Suspect]
     Dosage: 0.75 MG, BID
     Route: 048
     Dates: start: 20070621
  3. RAD 666 RAD+TAB+PTR [Suspect]
     Dosage: 0.25 MG, BID
     Route: 048
  4. RAD 666 RAD+TAB+PTR [Suspect]
     Dosage: 0.75 MG, BID
     Route: 048

REACTIONS (19)
  - ABDOMINAL PAIN [None]
  - ABDOMINAL TENDERNESS [None]
  - ABSCESS DRAINAGE [None]
  - ABSCESS ORAL [None]
  - ASTHENIA [None]
  - CHILLS [None]
  - CYTOMEGALOVIRUS INFECTION [None]
  - DIARRHOEA [None]
  - DIZZINESS [None]
  - HEADACHE [None]
  - NAUSEA [None]
  - OROPHARYNGEAL PAIN [None]
  - PRODUCTIVE COUGH [None]
  - PYREXIA [None]
  - RHINITIS [None]
  - SINUSITIS [None]
  - TOOTH EXTRACTION [None]
  - VOMITING [None]
  - WHITE BLOOD CELL COUNT DECREASED [None]
